FAERS Safety Report 5392757-0 (Version None)
Quarter: 2007Q3

REPORT INFORMATION
  Report Type: 
  Country: None (occurrence: None)
  Receive Date: 20070720
  Receipt Date: 20070709
  Transmission Date: 20080115
  Serious: Yes (Life-Threatening, Hospitalization)
  Sender: FDA-Public Use
  Company Number: JP-PFIZER INC-2007040885

PATIENT
  Sex: Male
  Weight: 43 kg

DRUGS (4)
  1. GABAPEN [Suspect]
     Indication: EPILEPSY
     Route: 048
  2. DEPAKENE [Concomitant]
     Route: 048
  3. EXCEGRAN [Concomitant]
     Route: 048
  4. CLOBAZAM [Concomitant]
     Route: 048

REACTIONS (2)
  - ALTERED STATE OF CONSCIOUSNESS [None]
  - MIOSIS [None]
